FAERS Safety Report 10168874 (Version 1)
Quarter: 2014Q2

REPORT INFORMATION
  Report Type: Spontaneous
  Country: JP (occurrence: None)
  Receive Date: 20140509
  Receipt Date: 20140509
  Transmission Date: 20141212
  Serious: Yes (Death)
  Sender: FDA-Public Use
  Company Number: 2014P1003826

PATIENT
  Sex: Male
  Weight: 68.5 kg

DRUGS (10)
  1. LITHIUM [Suspect]
  2. FLUVOXAMINE MALEATE [Suspect]
  3. VALPROATE SODIUM [Concomitant]
  4. DIAZEPAM [Concomitant]
  5. ZOLPIDEM [Concomitant]
  6. CHLORPROMAZINE [Concomitant]
  7. PROMETHAZINE [Concomitant]
  8. ZOPICLONE [Concomitant]
  9. FLUNITRAZEPAM [Concomitant]
  10. BROTIZOLAM [Concomitant]

REACTIONS (12)
  - Toxicity to various agents [None]
  - Suicide attempt [None]
  - Hyperhidrosis [None]
  - Cardio-respiratory arrest [None]
  - Haemorrhage subcutaneous [None]
  - Skin abrasion [None]
  - Pulmonary oedema [None]
  - Arteriosclerosis [None]
  - Ischaemia [None]
  - Pulmonary alveolar haemorrhage [None]
  - Brain oedema [None]
  - Drug interaction [None]
